FAERS Safety Report 9670689 (Version 1)
Quarter: 2013Q4

REPORT INFORMATION
  Report Type: Spontaneous
  Country: US (occurrence: US)
  Receive Date: 20131106
  Receipt Date: 20131106
  Transmission Date: 20140711
  Serious: No
  Sender: FDA-Public Use
  Company Number: US-009507513-1311USA001779

PATIENT
  Sex: Female

DRUGS (1)
  1. PROVENTIL [Suspect]
     Indication: DYSPNOEA
     Dosage: 2 PUFFS 4 TIMES A DAY
     Route: 055
     Dates: start: 200511

REACTIONS (4)
  - Dyspnoea [Unknown]
  - Drug dose omission [Unknown]
  - Wrong technique in drug usage process [Unknown]
  - Product quality issue [Unknown]
